FAERS Safety Report 9514829 (Version 1)
Quarter: 2013Q3

REPORT INFORMATION
  Report Type: Spontaneous
  Country: CA (occurrence: None)
  Receive Date: 20130816
  Receipt Date: 20130816
  Transmission Date: 20140515
  Serious: Yes (Hospitalization)
  Sender: FDA-Public Use
  Company Number: 2013036635

PATIENT
  Age: 6 Year
  Sex: Female

DRUGS (1)
  1. PRIVIGEN [Suspect]
     Indication: KAWASAKI^S DISEASE
     Dosage: 40 G TOTAL, 50.4 ML/HR
     Route: 042
     Dates: start: 20130524, end: 20130524

REACTIONS (3)
  - Syncope [None]
  - Acute haemolytic transfusion reaction [None]
  - Pyrexia [None]
